FAERS Safety Report 9205011 (Version 4)
Quarter: 2013Q2

REPORT INFORMATION
  Report Type: Report from Study
  Country: ES (occurrence: ES)
  Receive Date: 20130402
  Receipt Date: 20130521
  Transmission Date: 20140414
  Serious: Yes (Other)
  Sender: FDA-Public Use
  Company Number: ES-ROCHE-1154452

PATIENT
  Age: 72 Year
  Sex: Male

DRUGS (1)
  1. VEMURAFENIB [Suspect]
     Indication: METASTATIC MALIGNANT MELANOMA
     Dosage: DATE OF LAST DSOE PRIOR TO SAE : 13/APR/2012
     Route: 048
     Dates: start: 20111110, end: 20120413

REACTIONS (1)
  - Urethral papilloma [Recovered/Resolved]
